FAERS Safety Report 8925616 (Version 2)
Quarter: 2012Q4

REPORT INFORMATION
  Report Type: 
  Country: US (occurrence: US)
  Receive Date: 20121126
  Receipt Date: 20121212
  Transmission Date: 20130627
  Serious: Yes (Hospitalization, Other)
  Sender: FDA-Public Use
  Company Number: US-PFIZER INC-2012292873

PATIENT
  Sex: Female

DRUGS (3)
  1. LYRICA [Suspect]
     Dosage: UNK, 3x/day
  2. LYRICA [Suspect]
     Dosage: UNK, 4x/day
  3. LYRICA [Suspect]

REACTIONS (3)
  - Arthropathy [Unknown]
  - Fall [Unknown]
  - Urinary tract infection [Unknown]
